FAERS Safety Report 17905561 (Version 2)
Quarter: 2021Q2

REPORT INFORMATION
  Report Type: Spontaneous
  Country: US (occurrence: US)
  Receive Date: 20200617
  Receipt Date: 20210629
  Transmission Date: 20210717
  Serious: Yes (Other)
  Sender: FDA-Public Use
  Company Number: US-TEVA-2020-US-1247547

PATIENT
  Sex: Female

DRUGS (2)
  1. METOPROLOL SUCCINATE TEVA [Suspect]
     Active Substance: METOPROLOL SUCCINATE
     Dosage: EXTENDED RELEASE; 25 MG
     Route: 065
  2. METOPROLOL SUCCINATE TEVA [Suspect]
     Active Substance: METOPROLOL SUCCINATE
     Dosage: EXTENDED RELEASE; 12.5 MG
     Route: 065
     Dates: start: 202004

REACTIONS (4)
  - Palpitations [Not Recovered/Not Resolved]
  - Heart rate increased [Not Recovered/Not Resolved]
  - Product substitution issue [Unknown]
  - Sleep disorder [Unknown]

NARRATIVE: CASE EVENT DATE: 202004
